FAERS Safety Report 13447885 (Version 1)
Quarter: 2017Q2

REPORT INFORMATION
  Report Type: Spontaneous
  Country: US (occurrence: US)
  Receive Date: 20170417
  Receipt Date: 20170417
  Transmission Date: 20170830
  Serious: Yes (Hospitalization)
  Sender: FDA-Public Use
  Company Number: None

PATIENT
  Age: 66 Year
  Sex: Female
  Weight: 72 kg

DRUGS (16)
  1. QUETIAPINE. [Concomitant]
     Active Substance: QUETIAPINE
  2. CYMBALTA [Concomitant]
     Active Substance: DULOXETINE HYDROCHLORIDE
  3. NAPROXEN SODIUM. [Concomitant]
     Active Substance: NAPROXEN SODIUM
  4. TIZANIDINE. [Concomitant]
     Active Substance: TIZANIDINE
  5. VITAMIN D [Concomitant]
     Active Substance: CHOLECALCIFEROL
  6. ODANSETRON [Concomitant]
     Active Substance: ONDANSETRON
  7. RAMIPRIL. [Concomitant]
     Active Substance: RAMIPRIL
  8. HYDROCHLOROTHIAZINDE [Concomitant]
  9. ACYCLOVIR. [Concomitant]
     Active Substance: ACYCLOVIR
  10. METOPROLOL ER [Concomitant]
     Active Substance: METOPROLOL SUCCINATE
  11. HYSOCYAMINE [Concomitant]
  12. ALEMTUZUMAB [Suspect]
     Active Substance: ALEMTUZUMAB
     Indication: RELAPSING-REMITTING MULTIPLE SCLEROSIS
     Dosage: X 3 DAYS
     Dates: start: 201402
  13. BOTOX [Concomitant]
     Active Substance: ONABOTULINUMTOXINA
  14. HYDROCODONE [Concomitant]
     Active Substance: HYDROCODONE
  15. AMPYRA [Concomitant]
     Active Substance: DALFAMPRIDINE
  16. BACLOFEN. [Concomitant]
     Active Substance: BACLOFEN

REACTIONS (6)
  - Hemiparesis [None]
  - Nausea [None]
  - Dehydration [None]
  - Relapsing-remitting multiple sclerosis [None]
  - Blood creatinine increased [None]
  - Diarrhoea [None]

NARRATIVE: CASE EVENT DATE: 20170216
